FAERS Safety Report 18185967 (Version 1)
Quarter: 2020Q3

REPORT INFORMATION
  Report Type: Spontaneous
  Country: US (occurrence: US)
  Receive Date: 20200824
  Receipt Date: 20200824
  Transmission Date: 20201103
  Serious: Yes (Life-Threatening, Hospitalization, Other)
  Sender: FDA-Public Use
  Company Number: US-AUROBINDO-AUR-APL-2020-037590

PATIENT
  Age: 11 Year
  Sex: Female
  Weight: 30 kg

DRUGS (19)
  1. DIPHENHYDRAMINE. [Interacting]
     Active Substance: DIPHENHYDRAMINE
     Indication: PRODUCT USED FOR UNKNOWN INDICATION
     Dosage: UNK
     Route: 048
  2. CLONAZEPAM. [Suspect]
     Active Substance: CLONAZEPAM
     Indication: GENERALISED TONIC-CLONIC SEIZURE
     Dosage: 0.02 MILLIGRAM/KILOGRAM, ONCE A DAY
     Route: 048
  3. LORAZEPAM. [Concomitant]
     Active Substance: LORAZEPAM
     Indication: GENERALISED TONIC-CLONIC SEIZURE
     Dosage: 2 MILLIGRAM, EVERY 4?6 HOURS AS NEEDED (0.07 MG/KG)
     Route: 048
  4. GLYCOPYRROLATE. [Concomitant]
     Active Substance: GLYCOPYRROLATE
     Dosage: 1.5 MILLIGRAM, ONCE A DAY, IN THE MORNING, WAS GIVEN ORALLY AS NEEDED
     Route: 048
  5. DIVALPROEX [Suspect]
     Active Substance: DIVALPROEX SODIUM
     Indication: GENERALISED TONIC-CLONIC SEIZURE
     Dosage: 20 MILLIGRAM/KILOGRAM LOAD
     Route: 048
  6. LORAZEPAM. [Concomitant]
     Active Substance: LORAZEPAM
     Indication: ANXIETY
  7. GLYCOPYRROLATE. [Concomitant]
     Active Substance: GLYCOPYRROLATE
     Dosage: 1 MILLIGRAM, ONCE A DAY, AT BEDTIME, WAS GIVEN ORALLY AS NEEDED
     Route: 048
  8. BACLOFEN. [Concomitant]
     Active Substance: BACLOFEN
     Indication: PRODUCT USED FOR UNKNOWN INDICATION
     Dosage: 1051 MICROGRAM, ONCE A DAY
     Route: 065
  9. DIVALPROEX [Suspect]
     Active Substance: DIVALPROEX SODIUM
     Dosage: 200 MILLIGRAM, 3 TIMES A DAY
     Route: 048
  10. LEVETIRACETAM. [Concomitant]
     Active Substance: LEVETIRACETAM
     Indication: SEIZURE
     Dosage: 1200 MILLIGRAM, TWO TIMES A DAY (80 MG/KG/DAY)
     Route: 048
  11. ONFI [Interacting]
     Active Substance: CLOBAZAM
     Indication: SEIZURE
     Dosage: 5 MILLIGRAM, TWO TIMES A DAY (0.3 MILLIGRAM/KILOGRAM, ONCE A DAY)
     Route: 065
  12. LORAZEPAM. [Concomitant]
     Active Substance: LORAZEPAM
     Indication: SEIZURE
     Dosage: 1 MILLIGRAM, ONCE A DAY AT BED TIME
  13. CLONIDINE. [Suspect]
     Active Substance: CLONIDINE
     Indication: GENERALISED TONIC-CLONIC SEIZURE
     Dosage: 0.2 MILLIGRAM, ONCE A DAY AT BEDTIME
     Route: 065
  14. ONFI [Interacting]
     Active Substance: CLOBAZAM
     Dosage: 10 MILLIGRAM, TWO TIMES A DAY (0.5 MG/KG/DAY)
     Route: 065
  15. MELATONIN [Interacting]
     Active Substance: MELATONIN
     Indication: GENERALISED TONIC-CLONIC SEIZURE
     Dosage: 3 MILLIGRAM, ONCE A DAY, AT BEDTIME
     Route: 048
  16. LEVETIRACETAM. [Concomitant]
     Active Substance: LEVETIRACETAM
     Indication: GENERALISED TONIC-CLONIC SEIZURE
  17. GLYCOPYRROLATE. [Concomitant]
     Active Substance: GLYCOPYRROLATE
     Indication: GENERALISED TONIC-CLONIC SEIZURE
     Dosage: , IN THE MORNING, WAS GIVEN ORALLY AS NEEDED MILLIGRAM, ONCE A DAY
     Route: 048
  18. LORATADINE. [Interacting]
     Active Substance: LORATADINE
     Indication: GENERALISED TONIC-CLONIC SEIZURE
     Dosage: 10 MILLIGRAM, ONCE A DAY
     Route: 048
  19. ONFI [Interacting]
     Active Substance: CLOBAZAM
     Indication: GENERALISED TONIC-CLONIC SEIZURE
     Dosage: 7.5 MILLIGRAM TWO TIMES A DAY (0.5 MILLIGRAM/KILOGRAM/DAY)
     Route: 065

REACTIONS (6)
  - Drug interaction [Recovered/Resolved]
  - Sedation [Recovered/Resolved]
  - Sedation complication [Recovered/Resolved]
  - Bradycardia [Unknown]
  - Hypersomnia [Recovered/Resolved]
  - Hypoxia [Unknown]
